FAERS Safety Report 8315675-4 (Version None)
Quarter: 2012Q2

REPORT INFORMATION
  Report Type: 
  Country: None (occurrence: None)
  Receive Date: 20120426
  Receipt Date: 20120417
  Transmission Date: 20120825
  Serious: Yes (Hospitalization, Other)
  Sender: FDA-Public Use
  Company Number: PR-ABBOTT-11P-131-0887114-00

PATIENT
  Sex: Male
  Weight: 88.984 kg

DRUGS (4)
  1. GLUCOSOL(LANGERSTOEMIA SPECIOSE LEAVES CAPSULES) [Concomitant]
     Indication: PRODUCT USED FOR UNKNOWN INDICATION
     Route: 048
  2. HUMIRA [Suspect]
     Indication: ARTHRITIS
  3. PROZAC [Concomitant]
     Indication: DEPRESSION
     Route: 048
     Dates: start: 20110501
  4. HUMIRA [Suspect]
     Indication: ANKYLOSING SPONDYLITIS
     Route: 058
     Dates: end: 20111217

REACTIONS (2)
  - COLONIC POLYP [None]
  - PAIN [None]
